FAERS Safety Report 21172271 (Version 5)
Quarter: 2022Q3

REPORT INFORMATION
  Report Type: Spontaneous
  Country: US (occurrence: US)
  Receive Date: 20220804
  Receipt Date: 20220810
  Transmission Date: 20221027
  Serious: Yes (Other)
  Sender: FDA-Public Use
  Company Number: US-KADMON-US-KAD-22-00693

PATIENT
  Sex: Male

DRUGS (1)
  1. REZUROCK [Suspect]
     Active Substance: BELUMOSUDIL
     Indication: Graft versus host disease
     Dosage: 200 MILLIGRAM, UNK
     Route: 065

REACTIONS (6)
  - Graft versus host disease in skin [Unknown]
  - Condition aggravated [Unknown]
  - Skin exfoliation [Unknown]
  - Erythema [Unknown]
  - Urticaria [Unknown]
  - Rash [Unknown]
